FAERS Safety Report 26111227 (Version 1)
Quarter: 2025Q4

REPORT INFORMATION
  Report Type: Spontaneous
  Country: US (occurrence: US)
  Receive Date: 20251202
  Receipt Date: 20251202
  Transmission Date: 20260117
  Serious: No
  Sender: TEVA
  Company Number: US-ABBVIE-6299752

PATIENT
  Sex: Female

DRUGS (1)
  1. OXYTROL FOR WOMEN [Suspect]
     Active Substance: OXYBUTYNIN
     Indication: Product used for unknown indication
     Dosage: 8 PATCHES, PROVIDING A 32-DAY SUPPLY.
     Route: 062

REACTIONS (2)
  - Confusional state [Unknown]
  - Headache [Unknown]
